FAERS Safety Report 6443317-1 (Version None)
Quarter: 2009Q4

REPORT INFORMATION
  Report Type: 
  Country: None (occurrence: None)
  Receive Date: 20091117
  Receipt Date: 20091102
  Transmission Date: 20100525
  Serious: Yes (Hospitalization)
  Sender: FDA-Public Use
  Company Number: ES-JNJFOC-20091104170

PATIENT
  Age: 68 Year
  Sex: Male

DRUGS (5)
  1. ADOLONTA [Suspect]
     Indication: NEURALGIA
     Route: 042
     Dates: start: 20050620, end: 20050703
  2. MORPHINE HYDROCHLORIDE [Suspect]
     Indication: NEURALGIA
     Route: 058
     Dates: start: 20050623, end: 20050703
  3. DEPRAX [Suspect]
     Indication: NEURALGIA
     Route: 048
     Dates: start: 20050617, end: 20050703
  4. HALOPERIDOL [Suspect]
     Indication: NEURALGIA
     Route: 048
     Dates: start: 20050514, end: 20050616
  5. TRANXILIUM [Suspect]
     Indication: NEURALGIA
     Route: 048
     Dates: start: 20050613, end: 20050616

REACTIONS (5)
  - DEPRESSED LEVEL OF CONSCIOUSNESS [None]
  - IMPAIRED GASTRIC EMPTYING [None]
  - MECHANICAL ILEUS [None]
  - URINARY RETENTION [None]
  - VOMITING [None]
